FAERS Safety Report 10252736 (Version 1)
Quarter: 2014Q2

REPORT INFORMATION
  Report Type: Spontaneous
  Country: IT (occurrence: IT)
  Receive Date: 20140623
  Receipt Date: 20140623
  Transmission Date: 20141212
  Serious: Yes (Life-Threatening)
  Sender: FDA-Public Use
  Company Number: IT-WATSON-2014-13045

PATIENT
  Age: 74 Year
  Sex: Male

DRUGS (7)
  1. RIVASTIGMINE (UNKNOWN) [Suspect]
     Indication: VASCULAR DEMENTIA
     Dosage: 5.5 MG, DAILY
     Route: 048
     Dates: start: 20130101, end: 20140604
  2. EBIXA [Suspect]
     Indication: VASCULAR DEMENTIA
     Dosage: 20 MG, DAILY
     Route: 048
     Dates: start: 20140415, end: 20140604
  3. ACETYLSALICYLIC ACID [Concomitant]
     Indication: PRODUCT USED FOR UNKNOWN INDICATION
     Dosage: 100 MG, UNK
     Route: 048
  4. OLMESARTAN MEDOXOMIL [Concomitant]
     Indication: PRODUCT USED FOR UNKNOWN INDICATION
     Dosage: 40 MG, UNK
     Route: 048
  5. ALLOPURINOL [Concomitant]
     Indication: PRODUCT USED FOR UNKNOWN INDICATION
     Dosage: 150 MG, UNK
     Route: 048
  6. ALPRAZOLAM [Concomitant]
     Indication: PRODUCT USED FOR UNKNOWN INDICATION
     Dosage: UNK
     Route: 065
  7. MELATONIN [Concomitant]
     Indication: PRODUCT USED FOR UNKNOWN INDICATION
     Dosage: 3 G, UNK
     Route: 065

REACTIONS (2)
  - Suicide attempt [Not Recovered/Not Resolved]
  - Fall [Not Recovered/Not Resolved]
